FAERS Safety Report 14252117 (Version 17)
Quarter: 2019Q1

REPORT INFORMATION
  Report Type: Report from Study
  Country: GB (occurrence: GB)
  Receive Date: 20171205
  Receipt Date: 20190306
  Transmission Date: 20190417
  Serious: Yes (Hospitalization)
  Sender: FDA-Public Use
  Company Number: GB-TAKEDA-2017MPI010879

PATIENT
  Age: 70 Year
  Sex: Female

DRUGS (7)
  1. DEXAMETHASONE. [Suspect]
     Active Substance: DEXAMETHASONE
     Indication: PRODUCT USED FOR UNKNOWN INDICATION
     Dosage: 2 MG, UNK
     Route: 065
  2. LENALIDOMIDE [Suspect]
     Active Substance: LENALIDOMIDE
     Indication: PRODUCT USED FOR UNKNOWN INDICATION
     Dosage: 25 MILLIGRAM
     Route: 065
  3. IXAZOMIB [Suspect]
     Active Substance: IXAZOMIB
     Indication: PLASMA CELL MYELOMA
     Dosage: UNK
     Route: 048
  4. DEXAMETHASONE. [Suspect]
     Active Substance: DEXAMETHASONE
     Dosage: 1 MG, UNK
     Route: 065
  5. IXAZOMIB [Suspect]
     Active Substance: IXAZOMIB
     Dosage: UNK
     Route: 048
  6. DEXAMETHASONE. [Suspect]
     Active Substance: DEXAMETHASONE
     Dosage: 6 MILLIGRAM, 1/WEEK
     Route: 065
  7. LENALIDOMIDE [Suspect]
     Active Substance: LENALIDOMIDE
     Dosage: 15 MILLIGRAM, QD
     Route: 065

REACTIONS (20)
  - Toxicity to various agents [Unknown]
  - Off label use [Unknown]
  - Micturition urgency [Unknown]
  - Fatigue [Unknown]
  - Joint swelling [Unknown]
  - Nausea [Unknown]
  - Joint stiffness [Unknown]
  - Skin lesion [Unknown]
  - Paraproteinaemia [Unknown]
  - Monoclonal immunoglobulin present [Unknown]
  - Vomiting [Unknown]
  - Nail bed infection [Unknown]
  - Pain in extremity [Not Recovered/Not Resolved]
  - Haematoma [Recovering/Resolving]
  - Lip swelling [Unknown]
  - Peripheral swelling [Not Recovered/Not Resolved]
  - Back pain [Recovered/Resolved]
  - Urinary hesitation [Unknown]
  - Muscle spasms [Unknown]
  - Lip pain [Unknown]
